FAERS Safety Report 15021428 (Version 1)
Quarter: 2018Q2

REPORT INFORMATION
  Report Type: Spontaneous
  Country: CY (occurrence: CY)
  Receive Date: 20180618
  Receipt Date: 20180618
  Transmission Date: 20180711
  Serious: Yes (Life-Threatening)
  Sender: FDA-Public Use
  Company Number: CY-FRESENIUS KABI-FK201806863

PATIENT
  Age: 50 Year
  Sex: Male

DRUGS (1)
  1. METHYLPREDNISOLONE (MANUFACTURER UNKNOWN) [Suspect]
     Active Substance: METHYLPREDNISOLONE
     Indication: STEROID THERAPY
     Route: 042

REACTIONS (3)
  - Infection [Recovered/Resolved with Sequelae]
  - Listeriosis [Recovered/Resolved with Sequelae]
  - Encephalitis brain stem [Recovered/Resolved with Sequelae]
